FAERS Safety Report 8295285-8 (Version None)
Quarter: 2012Q2

REPORT INFORMATION
  Report Type: 
  Country: None (occurrence: None)
  Receive Date: 20120418
  Receipt Date: 20111013
  Transmission Date: 20120825
  Serious: No
  Sender: FDA-Public Use
  Company Number: US-ASTRAZENECA-2011SE62073

PATIENT
  Age: 63 Year
  Sex: Male
  Weight: 81.6 kg

DRUGS (4)
  1. NEXIUM [Suspect]
     Route: 048
     Dates: start: 20110929
  2. TIMOLOL EYE DROP [Concomitant]
  3. MEDICATION FOR DEPRESSION [Concomitant]
  4. SIMVASTATIN [Concomitant]

REACTIONS (2)
  - FLATULENCE [None]
  - DECREASED APPETITE [None]
